FAERS Safety Report 10181064 (Version 1)
Quarter: 2014Q2

REPORT INFORMATION
  Report Type: Spontaneous
  Country: US (occurrence: US)
  Receive Date: 20140519
  Receipt Date: 20140519
  Transmission Date: 20141212
  Serious: No
  Sender: FDA-Public Use
  Company Number: US-AMGEN INC.-USASP2014022936

PATIENT
  Age: 58 Year
  Sex: Female

DRUGS (3)
  1. PROLIA [Suspect]
     Indication: OSTEOPOROSIS POSTMENOPAUSAL
     Dosage: 60 MG, Q6MO
     Route: 065
     Dates: start: 20140307
  2. CELEBREX [Concomitant]
     Dosage: UNK UNK, AS NECESSARY
  3. IMITREX                            /01044801/ [Concomitant]
     Dosage: UNK UNK, AS NECESSARY

REACTIONS (4)
  - Lip exfoliation [Unknown]
  - Lip blister [Unknown]
  - Oral discomfort [Unknown]
  - Lip disorder [Unknown]
